FAERS Safety Report 7112458-8 (Version None)
Quarter: 2010Q4

REPORT INFORMATION
  Report Type: 
  Country: None (occurrence: None)
  Receive Date: 20101119
  Receipt Date: 20100723
  Transmission Date: 20110411
  Serious: Yes (Hospitalization, Other)
  Sender: FDA-Public Use
  Company Number: US-BAYER-201016877NA

PATIENT
  Age: 27 Year
  Sex: Female
  Weight: 113 kg

DRUGS (5)
  1. YAZ [Suspect]
     Indication: ORAL CONTRACEPTION
     Route: 048
     Dates: start: 20080601, end: 20080623
  2. LORTAB [Concomitant]
  3. CELEXA [Concomitant]
  4. ANTIBIOTICS [Concomitant]
  5. HYDROCODONE [Concomitant]

REACTIONS (4)
  - ANXIETY [None]
  - CRYING [None]
  - DEPRESSION SUICIDAL [None]
  - PULMONARY EMBOLISM [None]
